FAERS Safety Report 7807077-1 (Version None)
Quarter: 2011Q4

REPORT INFORMATION
  Report Type: 
  Country: None (occurrence: None)
  Receive Date: 20111011
  Receipt Date: 20111006
  Transmission Date: 20120403
  Serious: Yes (Hospitalization, Other)
  Sender: FDA-Public Use
  Company Number: CA-AMGEN-CANSP2011024096

PATIENT
  Age: 64 Year
  Sex: Female
  Weight: 104.3 kg

DRUGS (3)
  1. NITROGLYCERIN [Concomitant]
     Dosage: UNK
  2. ENBREL [Suspect]
  3. ENBREL [Suspect]
     Indication: PSORIASIS
     Dosage: 50 MG, Q2WK
     Dates: start: 20091121

REACTIONS (11)
  - INTESTINAL RESECTION [None]
  - DIZZINESS [None]
  - HAEMATURIA [None]
  - NEPHROLITHIASIS [None]
  - CARDIOVASCULAR DISORDER [None]
  - HEADACHE [None]
  - FUNCTIONAL GASTROINTESTINAL DISORDER [None]
  - SYNCOPE [None]
  - COLOSTOMY [None]
  - CYSTITIS [None]
  - FEELING ABNORMAL [None]
